FAERS Safety Report 4673034-X (Version None)
Quarter: 2005Q2

REPORT INFORMATION
  Report Type: 
  Country: None (occurrence: None)
  Receive Date: 20050524
  Receipt Date: 20041124
  Transmission Date: 20051028
  Serious: Yes (Death)
  Sender: FDA-Public Use
  Company Number: BEWYE234325NOV04

PATIENT
  Age: 27 Year
  Sex: Female

DRUGS (11)
  1. GEMTUZUMAB OZOGAMICIN (GEMTUZUMAB OZOGAMICIN, INJECTION) [Suspect]
     Indication: ACUTE MYELOID LEUKAEMIA RECURRENT
     Dosage: 14,9 MG, INTRAVENOUS
     Route: 042
     Dates: start: 20041110, end: 20041110
  2. OMEPRAZOLE [Concomitant]
  3. FLUCONAZOLE [Concomitant]
  4. ACYCLOVIR [Concomitant]
  5. TARIVID (OFLOXACIN HYDROCHLORIDE) [Concomitant]
  6. MAGNESIUM (MAGNESIUM) [Concomitant]
  7. FOLIC ACID [Concomitant]
  8. LYNESTRENOL (LYNESTRENOL) [Concomitant]
  9. FRAXIPARINE (HEPARIN-FRACTION, CALCIUM SALT) [Concomitant]
  10. URSODIOL [Concomitant]
  11. IMMUNOGLOBULINS (IMMUNOGLOBULINS) [Concomitant]

REACTIONS (4)
  - BLOOD BICARBONATE DECREASED [None]
  - BLOOD CREATINE INCREASED [None]
  - BLOOD UREA INCREASED [None]
  - VENOOCCLUSIVE LIVER DISEASE [None]
